FAERS Safety Report 18569441 (Version 1)
Quarter: 2020Q4

REPORT INFORMATION
  Report Type: Spontaneous
  Country: US (occurrence: US)
  Receive Date: 20201202
  Receipt Date: 20201202
  Transmission Date: 20210114
  Serious: No
  Sender: FDA-Public Use
  Company Number: None

PATIENT
  Age: 75 Year
  Sex: Female
  Weight: 67.5 kg

DRUGS (2)
  1. AVEENO POSITIVELY RADIANT DAILY MOISTURIZER SUNSCREEN BROAD SPECTRUM SPF30 [Suspect]
     Active Substance: AVOBENZONE\HOMOSALATE\OCTISALATE\OCTOCRYLENE\OXYBENZONE
     Indication: DRY SKIN PROPHYLAXIS
     Route: 061
     Dates: start: 20201129, end: 20201129
  2. CENTRUM VITAMINS FOR WOMEN  + VITAMIN D [Concomitant]

REACTIONS (4)
  - Application site inflammation [None]
  - Feeling hot [None]
  - Application site pain [None]
  - Application site swelling [None]

NARRATIVE: CASE EVENT DATE: 20201129
